FAERS Safety Report 25455674 (Version 1)
Quarter: 2025Q2

REPORT INFORMATION
  Report Type: Spontaneous
  Country: US (occurrence: US)
  Receive Date: 20250619
  Receipt Date: 20250619
  Transmission Date: 20250716
  Serious: Yes (Other)
  Sender: TEVA
  Company Number: US-TEVA-VS-3341308

PATIENT
  Age: 38 Year
  Sex: Female

DRUGS (7)
  1. RIZATRIPTAN [Suspect]
     Active Substance: RIZATRIPTAN
     Indication: Migraine
     Route: 048
     Dates: start: 2020
  2. REGLAN [Suspect]
     Active Substance: METOCLOPRAMIDE HYDROCHLORIDE
     Indication: Migraine
     Route: 048
  3. NURTEC ODT [Suspect]
     Active Substance: RIMEGEPANT SULFATE
     Indication: Migraine
     Route: 048
     Dates: start: 2021
  4. IBUPROFEN [Suspect]
     Active Substance: IBUPROFEN
     Indication: Migraine
     Route: 048
     Dates: start: 2000
  5. BOTOX [Suspect]
     Active Substance: ONABOTULINUMTOXINA
     Indication: Migraine
     Route: 065
     Dates: start: 2022
  6. FIORICET [Suspect]
     Active Substance: ACETAMINOPHEN\BUTALBITAL\CAFFEINE
     Indication: Migraine
     Route: 048
     Dates: start: 20241218
  7. TYLENOL [Suspect]
     Active Substance: ACETAMINOPHEN
     Indication: Migraine
     Route: 048

REACTIONS (4)
  - Gestational hypertension [Recovered/Resolved]
  - Maternal exposure timing unspecified [Unknown]
  - Caesarean section [Unknown]
  - Normal newborn [Unknown]

NARRATIVE: CASE EVENT DATE: 20240812
